FAERS Safety Report 12884540 (Version 2)
Quarter: 2016Q4

REPORT INFORMATION
  Report Type: Spontaneous
  Country: BR (occurrence: BR)
  Receive Date: 20161026
  Receipt Date: 20161104
  Transmission Date: 20170207
  Serious: No
  Sender: FDA-Public Use
  Company Number: BR-BRISTOL-MYERS SQUIBB COMPANY-BMS-2016-089200

PATIENT
  Sex: Female

DRUGS (4)
  1. TAPAZOL                            /00022901/ [Concomitant]
     Indication: THYROID ATROPHY
     Dosage: 5 MG, UNK
     Route: 065
  2. ELIQUIS [Suspect]
     Active Substance: APIXABAN
     Indication: PULMONARY OEDEMA
     Dosage: 5 MG, BID
     Route: 065
  3. ELIQUIS [Suspect]
     Active Substance: APIXABAN
     Indication: PRODUCT USED FOR UNKNOWN INDICATION
     Dosage: 2.5 MG, BID
     Route: 065
     Dates: start: 20160725
  4. LIMBITROL                          /00033501/ [Concomitant]
     Indication: POLYNEUROPATHY
     Dosage: UNK
     Route: 065

REACTIONS (1)
  - Tooth disorder [Unknown]
